FAERS Safety Report 8307137-5 (Version None)
Quarter: 2012Q2

REPORT INFORMATION
  Report Type: 
  Country: None (occurrence: None)
  Receive Date: 20120424
  Receipt Date: 20120420
  Transmission Date: 20120825
  Serious: Yes (Other)
  Sender: FDA-Public Use
  Company Number: AU-PFIZER INC-2012097656

PATIENT
  Age: 40 Year
  Sex: Female

DRUGS (2)
  1. ZOLOFT [Suspect]
     Dosage: 100MG, DAILY
  2. ZOLOFT [Suspect]
     Dosage: 50MG, DAILY

REACTIONS (5)
  - HYPOPNOEA [None]
  - NERVOUSNESS [None]
  - DYSSTASIA [None]
  - PALPITATIONS [None]
  - DYSPNOEA [None]
